FAERS Safety Report 8296666-9 (Version None)
Quarter: 2012Q2

REPORT INFORMATION
  Report Type: 
  Country: None (occurrence: None)
  Receive Date: 20120418
  Receipt Date: 20120418
  Transmission Date: 20120825
  Serious: Yes (Other)
  Sender: FDA-Public Use
  Company Number: None

PATIENT
  Sex: Male

DRUGS (1)
  1. CHANTIX [Suspect]
     Indication: SMOKING CESSATION THERAPY
     Dosage: 1.0 MG
     Route: 048
     Dates: start: 20120313, end: 20120414

REACTIONS (3)
  - APHAGIA [None]
  - PAROSMIA [None]
  - DEPRESSION [None]
